FAERS Safety Report 9968477 (Version 1)
Quarter: 2014Q1

REPORT INFORMATION
  Report Type: Report from Study
  Country: US (occurrence: US)
  Receive Date: 20140306
  Receipt Date: 20140306
  Transmission Date: 20141002
  Serious: No
  Sender: FDA-Public Use
  Company Number: US-ABBVIE-13P-163-1146978-00

PATIENT
  Age: 67 Year
  Sex: Female

DRUGS (4)
  1. HUMIRA [Suspect]
     Indication: RHEUMATOID ARTHRITIS
     Dates: start: 20130729
  2. LEXAPRO [Concomitant]
     Indication: ANXIETY
  3. LEXAPRO [Concomitant]
     Indication: DEPRESSION
  4. HYDROCHLOROTHIAZIDE [Concomitant]
     Indication: DIURETIC THERAPY

REACTIONS (3)
  - Device malfunction [Recovered/Resolved]
  - Injection site pain [Recovered/Resolved]
  - Injection site pain [Recovered/Resolved]
